FAERS Safety Report 5396017-3 (Version None)
Quarter: 2007Q3

REPORT INFORMATION
  Report Type: 
  Country: None (occurrence: None)
  Receive Date: 20070724
  Receipt Date: 20070712
  Transmission Date: 20080115
  Serious: Yes (Other)
  Sender: FDA-Public Use
  Company Number: US-PFIZER INC-2007058342

PATIENT
  Sex: Female
  Weight: 127 kg

DRUGS (1)
  1. BEXTRA [Suspect]
     Indication: EXOSTOSIS
     Dates: start: 20020114, end: 20040222

REACTIONS (1)
  - RASH [None]
